FAERS Safety Report 7555445-8 (Version None)
Quarter: 2011Q2

REPORT INFORMATION
  Report Type: 
  Country: None (occurrence: None)
  Receive Date: 20110617
  Receipt Date: 20110608
  Transmission Date: 20111010
  Serious: Yes (Hospitalization, Other)
  Sender: FDA-Public Use
  Company Number: US-ASTRAZENECA-2011SE25167

PATIENT
  Age: 47 Year
  Sex: Female

DRUGS (6)
  1. LEVAQUIN [Concomitant]
  2. STEROIDS [Concomitant]
     Route: 042
  3. NEXIUM [Suspect]
     Route: 048
  4. NEXIUM [Suspect]
     Route: 048
  5. NEXIUM [Suspect]
     Dosage: DOSE DOUBLED
     Route: 048
  6. DEXIVANT [Concomitant]

REACTIONS (6)
  - BEDRIDDEN [None]
  - GASTRIC ULCER [None]
  - DRUG DOSE OMISSION [None]
  - POLYPECTOMY [None]
  - DYSPNOEA [None]
  - SPEECH DISORDER [None]
